FAERS Safety Report 18986280 (Version 1)
Quarter: 2021Q1

REPORT INFORMATION
  Report Type: Spontaneous
  Country: US (occurrence: US)
  Receive Date: 20210309
  Receipt Date: 20210309
  Transmission Date: 20210420
  Serious: Yes (Other)
  Sender: FDA-Public Use
  Company Number: US-FRESENIUS MEDICAL CARE RENAL THERAPIES GROUP-FMC-2102-000151

PATIENT
  Age: 87 Year
  Sex: Male
  Weight: 70 kg

DRUGS (13)
  1. DELFLEX WITH DEXTROSE 1.5% LOW MAGNESIUM LOW CALCIUM [Suspect]
     Active Substance: CALCIUM CHLORIDE\DEXTROSE\MAGNESIUM CHLORIDE\SODIUM CHLORIDE\SODIUM LACTATE
     Indication: END STAGE RENAL DISEASE
     Dosage: FILL VOLUME 2000 ML, TOTAL VOLUME 8000 ML, 4 EXCHANGES, NO LAST FILL, NO DAYTIME EXCHANGE, DWELL TIM
     Route: 033
     Dates: start: 20161201
  2. METOPROLOL. [Concomitant]
     Active Substance: METOPROLOL
  3. VITAMIN D3 [Concomitant]
     Active Substance: CHOLECALCIFEROL
  4. DELFLEX WITH DEXTROSE 2.5% LOW MAGNESIUM LOW CALCIUM [Suspect]
     Active Substance: CALCIUM CHLORIDE\DEXTROSE\MAGNESIUM CHLORIDE\SODIUM CHLORIDE\SODIUM LACTATE
     Indication: END STAGE RENAL DISEASE
     Dosage: FILL VOLUME 2000 ML, TOTAL VOLUME 8000 ML, 4 EXCHANGES, NO LAST FILL, NO DAYTIME EXCHANGE, DWELL TIM
     Route: 033
     Dates: start: 20161201
  5. PHOSLO [Concomitant]
     Active Substance: CALCIUM ACETATE
     Route: 048
  6. REMERON [Concomitant]
     Active Substance: MIRTAZAPINE
  7. RENA?VITE [Concomitant]
     Active Substance: ASCORBIC ACID\BIOTIN\CALCIUM PANTOTHENATE\CYANOCOBALAMIN\FOLIC ACID\NIACINAMIDE\PYRIDOXINE HYDROCHLORIDE\RIBOFLAVIN\THIAMINE MONONITRATE
  8. RENVELA [Concomitant]
     Active Substance: SEVELAMER CARBONATE
  9. CALCITRIOL. [Concomitant]
     Active Substance: CALCITRIOL
  10. COLCHICINE. [Concomitant]
     Active Substance: COLCHICINE
  11. DELFLEX WITH DEXTROSE 4.25% LOW MAGNESIUM LOW CALCIUM [Suspect]
     Active Substance: CALCIUM CHLORIDE\DEXTROSE\MAGNESIUM CHLORIDE\SODIUM CHLORIDE\SODIUM LACTATE
     Indication: END STAGE RENAL DISEASE
     Dosage: FILL VOLUME 2000 ML, TOTAL VOLUME 8000 ML, 4 EXCHANGES, NO LAST FILL, NO DAYTIME EXCHANGE, DWELL TIM
     Route: 033
     Dates: start: 20161201
  12. LIPITOR [Concomitant]
     Active Substance: ATORVASTATIN CALCIUM
  13. TAMSULOSIN [Concomitant]
     Active Substance: TAMSULOSIN

REACTIONS (1)
  - Peritonitis bacterial [Recovering/Resolving]

NARRATIVE: CASE EVENT DATE: 20201223
